FAERS Safety Report 17456085 (Version 1)
Quarter: 2020Q1

REPORT INFORMATION
  Report Type: Spontaneous
  Country: US (occurrence: US)
  Receive Date: 20200225
  Receipt Date: 20200225
  Transmission Date: 20200409
  Serious: No
  Sender: FDA-Public Use
  Company Number: US-GW PHARMA-202002USGW00645

PATIENT

DRUGS (3)
  1. EPIDIOLEX [Suspect]
     Active Substance: CANNABIDIOL
     Indication: EPILEPSY
     Dosage: 9.9 MG/KG/DAY, 380 MILLIGRAM, BID
     Route: 048
     Dates: start: 20190131
  2. ONFI [Interacting]
     Active Substance: CLOBAZAM
     Indication: PRODUCT USED FOR UNKNOWN INDICATION
     Dosage: UNK
     Route: 065
  3. ONFI [Interacting]
     Active Substance: CLOBAZAM
     Dosage: DOSE DECREASED
     Route: 065

REACTIONS (3)
  - Fatigue [Recovered/Resolved]
  - Personality change [Recovered/Resolved]
  - Drug interaction [Unknown]

NARRATIVE: CASE EVENT DATE: 2019
